FAERS Safety Report 11302325 (Version 1)
Quarter: 2015Q3

REPORT INFORMATION
  Report Type: Spontaneous
  Country: US (occurrence: None)
  Receive Date: 20150723
  Receipt Date: 20150723
  Transmission Date: 20151125
  Serious: No
  Sender: FDA-Public Use
  Company Number: None

PATIENT
  Age: 61 Year
  Sex: Male
  Weight: 88.8 kg

DRUGS (2)
  1. DABRAFENIB [Suspect]
     Active Substance: DABRAFENIB
     Indication: METASTATIC MALIGNANT MELANOMA
     Dosage: MG  BID  PO
     Route: 048
     Dates: start: 20150703
  2. DABRAFENIB [Suspect]
     Active Substance: DABRAFENIB
     Indication: METASTATIC MALIGNANT MELANOMA
     Dosage: MG  BID  PO
     Route: 048
     Dates: start: 20150703

REACTIONS (5)
  - Productive cough [None]
  - Sleep disorder due to general medical condition, insomnia type [None]
  - Iridocyclitis [None]
  - Wheezing [None]
  - Uveitis [None]

NARRATIVE: CASE EVENT DATE: 20150720
